FAERS Safety Report 4836261-4 (Version None)
Quarter: 2005Q4

REPORT INFORMATION
  Report Type: 
  Country: None (occurrence: None)
  Receive Date: 20051118
  Receipt Date: 20051111
  Transmission Date: 20060501
  Serious: No
  Sender: FDA-Public Use
  Company Number: MC200501031

PATIENT

DRUGS (1)
  1. ANGIOMAX [Suspect]
     Indication: ANTICOAGULANT THERAPY
     Dosage: SEE IMAGE
     Route: 042
     Dates: start: 20020101, end: 20040101

REACTIONS (2)
  - NECROSIS [None]
  - TOE AMPUTATION [None]
